FAERS Safety Report 8724867 (Version 2)
Quarter: 2015Q2

REPORT INFORMATION
  Report Type: Report from Study
  Country: US (occurrence: US)
  Receive Date: 20120815
  Receipt Date: 20150402
  Transmission Date: 20150821
  Serious: Yes (Other)
  Sender: FDA-Public Use
  Company Number: US-ROCHE-1099837

PATIENT
  Age: 57 Year
  Sex: Female

DRUGS (8)
  1. SURFAK (UNITED STATES) [Concomitant]
     Route: 048
  2. ACTIVASE [Suspect]
     Active Substance: ALTEPLASE
     Indication: ACUTE MYOCARDIAL INFARCTION
     Route: 042
     Dates: start: 19900112
  3. ACTIVASE [Suspect]
     Active Substance: ALTEPLASE
     Route: 042
  4. NITROGLYCERIN DRIP [Concomitant]
     Route: 065
  5. NITROGLYCERIN DRIP [Concomitant]
     Route: 065
  6. NITROGLYCERIN DRIP [Concomitant]
     Indication: CHEST PAIN
     Route: 065
  7. HEPARIN [Concomitant]
     Active Substance: HEPARIN SODIUM
     Dosage: 4000  AND 20000 UNITS
     Route: 040
  8. PHENERGAN [Concomitant]
     Active Substance: PROMETHAZINE HYDROCHLORIDE
     Route: 042

REACTIONS (5)
  - Rhythm idioventricular [Unknown]
  - Chest pain [Unknown]
  - Electrocardiogram ST segment depression [Unknown]
  - Vomiting [Unknown]
  - Blood pressure decreased [Unknown]

NARRATIVE: CASE EVENT DATE: 19900112
